FAERS Safety Report 12453089 (Version 2)
Quarter: 2016Q3

REPORT INFORMATION
  Report Type: Spontaneous
  Country: GR (occurrence: GR)
  Receive Date: 20160609
  Receipt Date: 20160809
  Transmission Date: 20161109
  Serious: Yes (Other)
  Sender: FDA-Public Use
  Company Number: GR-AMGEN-GRCSP2016072393

PATIENT
  Age: 68 Year
  Sex: Female

DRUGS (1)
  1. PROLIA [Suspect]
     Active Substance: DENOSUMAB
     Indication: OSTEOPOROSIS
     Dosage: 60 MG, Q6MO
     Route: 065
     Dates: start: 201603

REACTIONS (5)
  - Leukopenia [Unknown]
  - Neutropenia [Unknown]
  - Pruritus [Unknown]
  - Eczema [Unknown]
  - Bone pain [Unknown]

NARRATIVE: CASE EVENT DATE: 201605
